FAERS Safety Report 12269285 (Version 1)
Quarter: 2016Q2

REPORT INFORMATION
  Report Type: Spontaneous
  Country: US (occurrence: US)
  Receive Date: 20160414
  Receipt Date: 20160414
  Transmission Date: 20160815
  Serious: Yes (Death)
  Sender: FDA-Public Use
  Company Number: US-MALLINCKRODT-T201601188

PATIENT
  Age: 22 Day
  Sex: Female

DRUGS (2)
  1. INOMAX [Suspect]
     Active Substance: NITRIC OXIDE
     Indication: NEONATAL HYPOXIA
     Dosage: 20 PPM, VIA HAND BAGGING
     Dates: start: 20160320, end: 20160320
  2. OXYGEN. [Concomitant]
     Active Substance: OXYGEN
     Dosage: UNK
     Dates: start: 20160227

REACTIONS (2)
  - Off label use [Unknown]
  - Neonatal respiratory arrest [Fatal]

NARRATIVE: CASE EVENT DATE: 20160320
